FAERS Safety Report 9387306 (Version 1)
Quarter: 2013Q3

REPORT INFORMATION
  Report Type: Spontaneous
  Country: JP (occurrence: None)
  Receive Date: 20130702
  Receipt Date: 20130702
  Transmission Date: 20140515
  Serious: Yes (Hospitalization)
  Sender: FDA-Public Use
  Company Number: FK201302286

PATIENT
  Age: 61 Year
  Sex: Female

DRUGS (2)
  1. GEMCITABINE (MANUFACTURER UNKNOWN) (GEMCITABINE) (GEMCITABINE) [Suspect]
     Indication: LARGE CELL LUNG CANCER STAGE IV
     Dates: start: 201010
  2. BEVACIZUMAB [Suspect]
     Indication: LARGE CELL LUNG CANCER STAGE IV
     Dates: start: 201010

REACTIONS (9)
  - Thrombotic thrombocytopenic purpura [None]
  - Vision blurred [None]
  - Headache [None]
  - Dyskinesia [None]
  - Hypertension [None]
  - Jaundice [None]
  - Renal impairment [None]
  - Haematocrit decreased [None]
  - Haemoglobin decreased [None]
